FAERS Safety Report 4893243-4 (Version None)
Quarter: 2006Q1

REPORT INFORMATION
  Report Type: 
  Country: None (occurrence: None)
  Receive Date: 20060124
  Receipt Date: 20060117
  Transmission Date: 20060701
  Serious: Yes (Hospitalization)
  Sender: FDA-Public Use
  Company Number: 2006-US-00399

PATIENT
  Age: 55 Year
  Sex: Male

DRUGS (1)
  1. CLOZAPINE [Suspect]
     Indication: SCHIZOPHRENIA, PARANOID TYPE
     Dosage: QD, ORAL
     Route: 048
     Dates: start: 20010201, end: 20051201

REACTIONS (3)
  - FALL [None]
  - HEAD INJURY [None]
  - LOSS OF CONSCIOUSNESS [None]
